FAERS Safety Report 5736468-8 (Version None)
Quarter: 2008Q2

REPORT INFORMATION
  Report Type: 
  Country: None (occurrence: None)
  Receive Date: 20080509
  Receipt Date: 20080509
  Transmission Date: 20081010
  Serious: Yes (Death)
  Sender: FDA-Public Use
  Company Number: None

PATIENT
  Age: 82 Year
  Sex: Female
  Weight: 51.7101 kg

DRUGS (2)
  1. DIGITEK  0.25   MYLAN -BERTEK- [Suspect]
     Indication: CARDIAC FAILURE CONGESTIVE
     Dosage: 0.25 MORNING PO
     Route: 048
     Dates: start: 20080404, end: 20080408
  2. DIGITEK   0.125   MYLAN -BERTEK- [Suspect]
     Indication: CARDIAC FAILURE CONGESTIVE
     Dosage: 0.125  MORNING  PO
     Route: 048
     Dates: start: 20080409, end: 20080409

REACTIONS (6)
  - HYPOTENSION [None]
  - MALAISE [None]
  - NAUSEA [None]
  - PHARMACEUTICAL PRODUCT COMPLAINT [None]
  - THERAPEUTIC AGENT TOXICITY [None]
  - VOMITING [None]
